FAERS Safety Report 9179076 (Version 2)
Quarter: 2013Q3

REPORT INFORMATION
  Report Type: Report from Study
  Country: US (occurrence: US)
  Receive Date: 20130321
  Receipt Date: 20130702
  Transmission Date: 20140515
  Serious: Yes (Hospitalization, Other)
  Sender: FDA-Public Use
  Company Number: US-JNJFOC-20130311042

PATIENT
  Age: 12 Year
  Sex: Male

DRUGS (1)
  1. NUCYNTA ER [Suspect]
     Indication: DRUG ABUSE
     Route: 065

REACTIONS (4)
  - Drug diversion [Unknown]
  - Drug abuse [Unknown]
  - Somnolence [Unknown]
  - Hypotension [Unknown]
